FAERS Safety Report 19820445 (Version 2)
Quarter: 2021Q3

REPORT INFORMATION
  Report Type: Spontaneous
  Country: DE (occurrence: DE)
  Receive Date: 20210913
  Receipt Date: 20210916
  Transmission Date: 20211014
  Serious: Yes (Death, Other)
  Sender: FDA-Public Use
  Company Number: DE-MYLANLABS-2021M1060884

PATIENT
  Age: 35 Year
  Sex: Female
  Weight: 80 kg

DRUGS (10)
  1. SOLIAN [Interacting]
     Active Substance: AMISULPRIDE
     Indication: SLEEP DISORDER
  2. METOPROLOL. [Interacting]
     Active Substance: METOPROLOL
     Indication: ESSENTIAL HYPERTENSION
  3. PROMETHAZINE [Interacting]
     Active Substance: PROMETHAZINE HYDROCHLORIDE
     Indication: ACUTE PSYCHOSIS
     Dosage: UNK(25 MG 1 ST MAX 44X/24 H 4 H)
     Route: 048
     Dates: start: 20200731
  4. METOPROLOL. [Interacting]
     Active Substance: METOPROLOL
     Indication: ESSENTIAL HYPERTENSION
  5. QUETIAPINE. [Interacting]
     Active Substance: QUETIAPINE
     Indication: ACUTE PSYCHOSIS
     Dosage: 300 MILLIGRAM, QD(300 MG 0?0?0?1)
     Route: 048
     Dates: start: 2021
  6. SOLIAN [Interacting]
     Active Substance: AMISULPRIDE
     Indication: RESTLESSNESS
  7. METOPROLOL. [Suspect]
     Active Substance: METOPROLOL
     Indication: HYPERTENSIVE CRISIS
     Dosage: 23.5 MILLIGRAM, QD(23,5 MG 1?0?0?0)
     Route: 048
     Dates: start: 20140913
  8. SOLIAN [Interacting]
     Active Substance: AMISULPRIDE
     Indication: ANXIETY
     Dosage: 100 MILLIGRAM(100 MG 1?0?1)
     Route: 048
     Dates: start: 20200731
  9. BIPRETERAX N [Interacting]
     Active Substance: INDAPAMIDE\PERINDOPRIL ARGININE
     Indication: HYPERTENSIVE CRISIS
     Dosage: 1 DOSAGE FORM, QD(5 MG / 1,25 MG 1?0?0?0)
     Route: 048
     Dates: start: 20140913
  10. BIPRETERAX N [Interacting]
     Active Substance: INDAPAMIDE\PERINDOPRIL ARGININE
     Indication: ESSENTIAL HYPERTENSION

REACTIONS (2)
  - Multiple organ dysfunction syndrome [Fatal]
  - Drug interaction [Unknown]

NARRATIVE: CASE EVENT DATE: 2021
